FAERS Safety Report 15734246 (Version 2)
Quarter: 2019Q1

REPORT INFORMATION
  Report Type: Spontaneous
  Country: US (occurrence: US)
  Receive Date: 20181218
  Receipt Date: 20190321
  Transmission Date: 20190417
  Serious: No
  Sender: FDA-Public Use
  Company Number: US-ASTRAZENECA-2018SF54606

PATIENT
  Age: 996 Month
  Sex: Female

DRUGS (5)
  1. BACLOFEN. [Concomitant]
     Active Substance: BACLOFEN
     Dosage: 10MG, EVERY DAY FOR 2 TO 3 DAYS
     Route: 048
  2. BYDUREON BCISE [Suspect]
     Active Substance: EXENATIDE
     Indication: TYPE 2 DIABETES MELLITUS
     Dosage: 2.0MG UNKNOWN
     Route: 058
     Dates: start: 20181121
  3. VICTOZA [Concomitant]
     Active Substance: LIRAGLUTIDE
  4. BYDUREON BCISE [Suspect]
     Active Substance: EXENATIDE
     Indication: TYPE 2 DIABETES MELLITUS
     Dosage: 2.0MG UNKNOWN
     Route: 058
     Dates: start: 20181104, end: 20181109
  5. VICTOZA [Concomitant]
     Active Substance: LIRAGLUTIDE
     Dosage: 0.6 MG DAILY FOR A WEEK

REACTIONS (5)
  - Back pain [Recovered/Resolved]
  - Disorientation [Recovered/Resolved]
  - Dizziness [Recovered/Resolved]
  - Wrong technique in product usage process [Recovered/Resolved]
  - Device issue [Unknown]

NARRATIVE: CASE EVENT DATE: 201811
